FAERS Safety Report 23853592 (Version 1)
Quarter: 2024Q2

REPORT INFORMATION
  Report Type: Spontaneous
  Country: US (occurrence: None)
  Receive Date: 20240513
  Receipt Date: 20240513
  Transmission Date: 20240716
  Serious: No
  Sender: FDA-Public Use
  Company Number: None

PATIENT
  Age: 55 Year
  Sex: Female
  Weight: 56.2 kg

DRUGS (7)
  1. EPIDIOLEX [Suspect]
     Active Substance: CANNABIDIOL
     Indication: Epilepsy
     Dosage: 1.4 ML TWICE A DAY ORAL
     Route: 048
     Dates: start: 20240416, end: 20240426
  2. Levetiracetam 1000mg tablet [Concomitant]
  3. Zonisamide 100mg capsule [Concomitant]
  4. CLOBAZAM [Concomitant]
     Active Substance: CLOBAZAM
  5. Acetaminophen 325mg tablet [Concomitant]
  6. Mirtazapine 30mg tablet [Concomitant]
  7. Cholecalciferol 2000 unit tablet [Concomitant]

REACTIONS (1)
  - Rash [None]

NARRATIVE: CASE EVENT DATE: 20240425
